FAERS Safety Report 15983854 (Version 1)
Quarter: 2019Q1

REPORT INFORMATION
  Report Type: Spontaneous
  Country: IN (occurrence: IN)
  Receive Date: 20190220
  Receipt Date: 20190220
  Transmission Date: 20190418
  Serious: Yes (Life-Threatening, Hospitalization, Other)
  Sender: FDA-Public Use
  Company Number: IN-MACLEODS PHARMACEUTICALS US LTD-MAC2017006095

PATIENT

DRUGS (4)
  1. TRAMADOL HYDROCHLORIDE. [Suspect]
     Active Substance: TRAMADOL HYDROCHLORIDE
     Dosage: ONCE IN 2-3 DAYS AS NECESSARY
     Route: 065
  2. TRAMADOL HYDROCHLORIDE. [Suspect]
     Active Substance: TRAMADOL HYDROCHLORIDE
     Indication: PRODUCT USED FOR UNKNOWN INDICATION
     Dosage: 50 MG/1 ML TRAMADOL
     Route: 065
  3. DICLOFENAC [Concomitant]
     Active Substance: DICLOFENAC
     Indication: MUSCULOSKELETAL PAIN
     Dosage: UNK
     Route: 065
  4. TRAMADOL HYDROCHLORIDE. [Suspect]
     Active Substance: TRAMADOL HYDROCHLORIDE
     Dosage: 300 MG,QD
     Route: 065

REACTIONS (13)
  - Cold sweat [Unknown]
  - Decreased interest [Unknown]
  - Tremor [Unknown]
  - Drug dependence [Recovered/Resolved]
  - Injection site abscess [Unknown]
  - Fatigue [Unknown]
  - Unresponsive to stimuli [Recovered/Resolved]
  - Overdose [Unknown]
  - Drug withdrawal syndrome [Unknown]
  - Drug abuse [Recovered/Resolved]
  - Respiratory rate decreased [Unknown]
  - Pain [Unknown]
  - Insomnia [Unknown]
